FAERS Safety Report 5326076-5 (Version None)
Quarter: 2007Q2

REPORT INFORMATION
  Report Type: 
  Country: None (occurrence: None)
  Receive Date: 20070516
  Receipt Date: 20070511
  Transmission Date: 20071010
  Serious: Yes (Hospitalization, Other)
  Sender: FDA-Public Use
  Company Number: GB-BAYER-200710715BCC

PATIENT
  Age: 8 Year
  Sex: Male

DRUGS (3)
  1. IBUPROFEN [Suspect]
     Indication: VIRAEMIA
     Dosage: TOTAL DAILY DOSE: 600 MG  UNIT DOSE: 200 MG
     Route: 048
  2. PARACETAMOL [Concomitant]
     Indication: VIRAEMIA
     Dosage: TOTAL DAILY DOSE: 2000 MG  UNIT DOSE: 500 MG
  3. CEFTRIAXONE [Concomitant]

REACTIONS (14)
  - ABDOMINAL PAIN [None]
  - ANURIA [None]
  - BLOOD CREATININE INCREASED [None]
  - BODY TEMPERATURE INCREASED [None]
  - DYSPNOEA [None]
  - LUNG CONSOLIDATION [None]
  - OEDEMA PERIPHERAL [None]
  - POSTRENAL FAILURE [None]
  - RENAL PAPILLARY NECROSIS [None]
  - SOMNOLENCE [None]
  - URETERIC OBSTRUCTION [None]
  - URETHRAL HAEMORRHAGE [None]
  - URINE OUTPUT DECREASED [None]
  - VOMITING [None]
